FAERS Safety Report 19068798 (Version 1)
Quarter: 2021Q1

REPORT INFORMATION
  Report Type: Spontaneous
  Country: US (occurrence: US)
  Receive Date: 20210329
  Receipt Date: 20210329
  Transmission Date: 20210420
  Serious: No
  Sender: FDA-Public Use
  Company Number: US-MYLANLABS-2021M1016136

PATIENT
  Sex: Female
  Weight: 68 kg

DRUGS (1)
  1. ESTRADIOL VAGINAL CREAM USP [Suspect]
     Active Substance: ESTRADIOL
     Indication: VULVOVAGINAL DRYNESS
     Dosage: 0.01 MILLIGRAM, QD (ONCE/DAY)
     Route: 067
     Dates: start: 20210224, end: 20210305

REACTIONS (3)
  - Urinary tract infection [Recovering/Resolving]
  - Swelling [Recovering/Resolving]
  - Application site irritation [Recovering/Resolving]
